FAERS Safety Report 20923886 (Version 2)
Quarter: 2022Q2

REPORT INFORMATION
  Report Type: Spontaneous
  Country: BE (occurrence: BE)
  Receive Date: 20220607
  Receipt Date: 20220609
  Transmission Date: 20220720
  Serious: Yes (Other)
  Sender: FDA-Public Use
  Company Number: BE-NOVARTISPH-NVSC2022BE129389

PATIENT
  Age: 71 Year
  Sex: Female

DRUGS (15)
  1. TOBRADEX [Suspect]
     Active Substance: DEXAMETHASONE\TOBRAMYCIN
     Indication: Premedication
     Dosage: 4 DOSAGE FORM, QD
     Route: 065
  2. TOBRADEX [Suspect]
     Active Substance: DEXAMETHASONE\TOBRAMYCIN
     Dosage: 3.5 G
     Route: 065
  3. BSS [Suspect]
     Active Substance: CALCIUM CHLORIDE\MAGNESIUM CHLORIDE\POTASSIUM CHLORIDE\SODIUM ACETATE\SODIUM CHLORIDE\SODIUM CITRATE
     Indication: Product used for unknown indication
     Dosage: 15 ML
     Route: 065
  4. POVIDONE-IODINE [Suspect]
     Active Substance: POVIDONE-IODINE
     Indication: Preoperative care
     Dosage: UNK
     Route: 065
  5. LIDOCAINE [Suspect]
     Active Substance: LIDOCAINE
     Indication: Preoperative care
     Dosage: UNK
     Route: 065
  6. DICLOFENAC SODIUM [Suspect]
     Active Substance: DICLOFENAC SODIUM
     Indication: Preoperative care
     Dosage: 4 DOSAGE FORM, QD
     Route: 065
  7. EPINEPHRINE BITARTRATE [Concomitant]
     Active Substance: EPINEPHRINE BITARTRATE
     Indication: Product used for unknown indication
     Dosage: 1 MG
     Route: 065
  8. CEFUROXIME SODIUM [Concomitant]
     Active Substance: CEFUROXIME SODIUM
     Indication: Product used for unknown indication
     Dosage: 50 MG
     Route: 065
  9. DIAMOX SEQUELS [Concomitant]
     Active Substance: ACETAZOLAMIDE
     Indication: Product used for unknown indication
     Dosage: 500 MG
     Route: 065
  10. POVIDONE-IODINE [Concomitant]
     Active Substance: POVIDONE-IODINE
     Indication: Product used for unknown indication
     Dosage: 20 ML, OPHTHALMIC SOLUTION,
     Route: 065
  11. LIDOCAINE HYDROCHLORIDE [Concomitant]
     Active Substance: LIDOCAINE HYDROCHLORIDE
     Indication: Product used for unknown indication
     Dosage: 1 %
     Route: 065
  12. TETRACAINE MINIMS [Concomitant]
     Indication: Product used for unknown indication
     Dosage: 1 %
     Route: 065
  13. PHENYLEPHRINE HYDROCHLORIDE\TROPICAMIDE [Concomitant]
     Active Substance: PHENYLEPHRINE HYDROCHLORIDE\TROPICAMIDE
     Indication: Product used for unknown indication
     Dosage: UNK, (0.28/5.4 MG)
     Route: 065
  14. SODIUM CHLORIDE [Concomitant]
     Active Substance: SODIUM CHLORIDE
     Indication: Product used for unknown indication
     Dosage: 0.9 %
     Route: 065
  15. HYALURONATE SODIUM [Concomitant]
     Active Substance: HYALURONATE SODIUM
     Indication: Product used for unknown indication
     Dosage: UNK, (8.5/0.85 MG/ML)
     Route: 065

REACTIONS (1)
  - Toxic anterior segment syndrome [Recovered/Resolved]
